FAERS Safety Report 18335319 (Version 1)
Quarter: 2020Q4

REPORT INFORMATION
  Report Type: Spontaneous
  Country: SK (occurrence: SK)
  Receive Date: 20201001
  Receipt Date: 20201001
  Transmission Date: 20210113
  Serious: Yes (Other)
  Sender: FDA-Public Use
  Company Number: NVSC2020SK262320

PATIENT
  Sex: Female
  Weight: 135 kg

DRUGS (2)
  1. COSENTYX [Suspect]
     Active Substance: SECUKINUMAB
     Indication: HIDRADENITIS
     Dosage: 300 MG, UNKNOWN
     Route: 065
     Dates: start: 20200916
  2. COSENTYX [Suspect]
     Active Substance: SECUKINUMAB
     Dosage: 300 MG, UNKNOWN
     Route: 065
     Dates: start: 20200923

REACTIONS (3)
  - Pyoderma gangrenosum [Unknown]
  - Product use in unapproved indication [Unknown]
  - Ulcer [Unknown]

NARRATIVE: CASE EVENT DATE: 202009
